FAERS Safety Report 4694038-7 (Version None)
Quarter: 2005Q2

REPORT INFORMATION
  Report Type: 
  Country: None (occurrence: None)
  Receive Date: 20050616
  Receipt Date: 20050613
  Transmission Date: 20051028
  Serious: Yes (Other)
  Sender: FDA-Public Use
  Company Number: 200512224BCC

PATIENT
  Age: 73 Year
  Sex: Female
  Weight: 66.6788 kg

DRUGS (7)
  1. ASPIRIN [Suspect]
     Dosage: 81 MG, QD, ORAL
     Route: 048
  2. PHILLIPS MINT TABLETS (MAGENSIUM HYDROXIDE) [Suspect]
     Indication: CONSTIPATION
  3. PHILLIPS  LIQUID GELS  (DOCUSATE SODIUM) [Suspect]
     Indication: CONSTIPATION
     Dosage: ORAL
     Route: 048
  4. PLAVIX [Concomitant]
  5. VERAPAMIL [Concomitant]
  6. PROTONIX [Concomitant]
  7. SYNTHROID [Concomitant]

REACTIONS (2)
  - CONSTIPATION [None]
  - GASTRIC HAEMORRHAGE [None]
